FAERS Safety Report 11295404 (Version 1)
Quarter: 2015Q3

REPORT INFORMATION
  Report Type: Spontaneous
  Country: US (occurrence: None)
  Receive Date: 20150722
  Receipt Date: 20150722
  Transmission Date: 20151125
  Serious: No
  Sender: FDA-Public Use
  Company Number: None

PATIENT
  Age: 59 Year
  Sex: Male

DRUGS (1)
  1. RIBAVIRIN 200 MG [Suspect]
     Active Substance: RIBAVIRIN
     Indication: HEPATITIS C
     Dosage: BY MOUTH
     Dates: start: 20150613

REACTIONS (8)
  - Blister [None]
  - Diarrhoea [None]
  - Glossodynia [None]
  - Fatigue [None]
  - Dyspnoea exertional [None]
  - Decreased appetite [None]
  - Oral discomfort [None]
  - Feeling abnormal [None]

NARRATIVE: CASE EVENT DATE: 20150719
